FAERS Safety Report 26138662 (Version 1)
Quarter: 2025Q4

REPORT INFORMATION
  Report Type: Report from Study
  Country: CN (occurrence: CN)
  Receive Date: 20251210
  Receipt Date: 20251210
  Transmission Date: 20260118
  Serious: Yes (Other)
  Sender: ROCHE
  Company Number: CN-ROCHE-10000449247

PATIENT
  Age: 54 Year
  Sex: Male

DRUGS (13)
  1. GLOFITAMAB [Suspect]
     Active Substance: GLOFITAMAB
     Indication: Central nervous system lymphoma
     Route: 042
  2. GLOFITAMAB [Suspect]
     Active Substance: GLOFITAMAB
     Indication: Central nervous system lymphoma
  3. LENALIDOMIDE [Concomitant]
     Active Substance: LENALIDOMIDE
  4. MABTHERA [Concomitant]
     Active Substance: RITUXIMAB
  5. THIOTEPA [Concomitant]
     Active Substance: THIOTEPA
  6. METHOTREXATE [Concomitant]
     Active Substance: METHOTREXATE
  7. ORELABRUTINIB [Concomitant]
     Active Substance: ORELABRUTINIB
  8. CYTARABINE [Concomitant]
     Active Substance: CYTARABINE
     Dosage: 2 GRAM  PER METER SQUARE
  9. SELINEXOR [Concomitant]
     Active Substance: SELINEXOR
  10. OBINUTUZUMAB [Concomitant]
     Active Substance: OBINUTUZUMAB
     Route: 042
  11. DEXAMETHASONE [Concomitant]
     Active Substance: DEXAMETHASONE
     Route: 042
  12. ASPIRIN [Concomitant]
     Active Substance: ASPIRIN
  13. ACETAMINOPHEN [Concomitant]
     Active Substance: ACETAMINOPHEN
     Route: 048

REACTIONS (3)
  - Immune effector cell-associated neurotoxicity syndrome [Unknown]
  - Cytokine release syndrome [Unknown]
  - Off label use [Unknown]
